FAERS Safety Report 8482508-5 (Version None)
Quarter: 2012Q3

REPORT INFORMATION
  Report Type: 
  Country: None (occurrence: None)
  Receive Date: 20120702
  Receipt Date: 20120627
  Transmission Date: 20120928
  Serious: Yes (Death)
  Sender: FDA-Public Use
  Company Number: US-BAXTER-2012BAX009219

PATIENT
  Sex: Male

DRUGS (2)
  1. DIANEAL [Suspect]
     Route: 033
     Dates: end: 20120615
  2. DIANEAL [Suspect]
     Route: 033
     Dates: end: 20120615

REACTIONS (3)
  - FAILURE TO THRIVE [None]
  - HYPOPHAGIA [None]
  - DEPRESSION [None]
